FAERS Safety Report 8276987-6 (Version None)
Quarter: 2012Q2

REPORT INFORMATION
  Report Type: 
  Country: None (occurrence: None)
  Receive Date: 20120412
  Receipt Date: 20120408
  Transmission Date: 20120825
  Serious: Yes (Other)
  Sender: FDA-Public Use
  Company Number: CN-ROCHE-1058177

PATIENT

DRUGS (1)
  1. PEGASYS [Suspect]
     Indication: HEPATITIS B

REACTIONS (1)
  - HEPATIC CIRRHOSIS [None]
